FAERS Safety Report 4836347-4 (Version None)
Quarter: 2005Q4

REPORT INFORMATION
  Report Type: 
  Country: None (occurrence: None)
  Receive Date: 20051123
  Receipt Date: 20050909
  Transmission Date: 20060501
  Serious: Yes (Other)
  Sender: FDA-Public Use
  Company Number: JP-ROCHE-417413

PATIENT
  Age: 70 Year
  Sex: Male

DRUGS (7)
  1. PEGASYS [Suspect]
     Indication: HEPATITIS C
     Route: 058
     Dates: start: 20050406, end: 20050810
  2. PEGASYS [Suspect]
     Route: 058
     Dates: start: 20050202, end: 20050330
  3. ADALAT [Concomitant]
     Route: 048
  4. CARDENALIN [Concomitant]
     Route: 048
  5. STARSIS [Concomitant]
     Route: 048
  6. FASTIC [Concomitant]
     Route: 048
  7. BASEN [Concomitant]
     Route: 048

REACTIONS (1)
  - CEREBRAL INFARCTION [None]
